FAERS Safety Report 9143867 (Version 2)
Quarter: 2013Q2

REPORT INFORMATION
  Report Type: Spontaneous
  Country: DE (occurrence: DE)
  Receive Date: 20130306
  Receipt Date: 20130401
  Transmission Date: 20140414
  Serious: Yes (Hospitalization, Other)
  Sender: FDA-Public Use
  Company Number: DE-AMGEN-DEUSP2013013470

PATIENT
  Age: 80 Year
  Sex: Male

DRUGS (10)
  1. ARANESP [Suspect]
     Indication: HAEMOGLOBIN DECREASED
     Dosage: 30 MUG, QWK
     Dates: start: 20130119, end: 20130203
  2. LANTUS [Concomitant]
     Dosage: 10 I.E, TID
  3. ACTRAPID                           /00646001/ [Concomitant]
     Dosage: UNK UNK, TID
  4. VIGANTOLETTEN [Concomitant]
     Dosage: 1000 IE, QD
  5. BICANORM [Concomitant]
  6. OSTEOTRIOL [Concomitant]
     Dosage: 0.25 MUG, UNK
  7. DOXAZOSIN [Concomitant]
  8. FERRO SANOL                        /00023502/ [Concomitant]
     Dosage: UNK UNK, QD
  9. RENVELA [Concomitant]
     Dosage: 800 MG, TID
  10. BISOPROLOL [Concomitant]
     Dosage: 2.5 MG, QD

REACTIONS (3)
  - Blood glucose increased [Recovering/Resolving]
  - Myocardial infarction [Unknown]
  - Syncope [Unknown]
